FAERS Safety Report 7860067-5 (Version None)
Quarter: 2011Q4

REPORT INFORMATION
  Report Type: 
  Country: None (occurrence: None)
  Receive Date: 20111025
  Receipt Date: 20111025
  Transmission Date: 20120403
  Serious: Yes (Hospitalization, Other)
  Sender: FDA-Public Use
  Company Number: DAV-NAP-11-11

PATIENT
  Age: 40 Year
  Sex: Male

DRUGS (1)
  1. NAPROXEN [Suspect]
     Indication: MIGRAINE
     Dosage: 440 MG, 3 TIMES/DAY ORAL
     Route: 048

REACTIONS (6)
  - GASTROINTESTINAL FISTULA [None]
  - CACHEXIA [None]
  - GASTRIC ULCER [None]
  - GASTRITIS EROSIVE [None]
  - BREATH ODOUR [None]
  - TREATMENT NONCOMPLIANCE [None]
